FAERS Safety Report 6804485-2 (Version None)
Quarter: 2010Q2

REPORT INFORMATION
  Report Type: 
  Country: None (occurrence: None)
  Receive Date: 20100628
  Receipt Date: 20070316
  Transmission Date: 20101027
  Serious: No
  Sender: FDA-Public Use
  Company Number: US-PFIZER INC-2007022745

PATIENT
  Sex: Female
  Weight: 72.57 kg

DRUGS (7)
  1. CADUET [Suspect]
     Indication: HYPERTENSION
     Dosage: 5/20
     Dates: start: 20060301
  2. CADUET [Suspect]
     Indication: BLOOD CHOLESTEROL INCREASED
  3. LABETALOL HCL [Concomitant]
  4. WARFARIN [Concomitant]
  5. COUMADIN [Concomitant]
  6. LISINOPRIL [Concomitant]
     Indication: HYPERTENSION
  7. HYDROCHLOROTHIAZIDE [Concomitant]

REACTIONS (1)
  - RASH PRURITIC [None]
